FAERS Safety Report 12105444 (Version 1)
Quarter: 2016Q1

REPORT INFORMATION
  Report Type: Spontaneous
  Country: CA (occurrence: CA)
  Receive Date: 20160223
  Receipt Date: 20160223
  Transmission Date: 20160526
  Serious: Yes (Other)
  Sender: FDA-Public Use
  Company Number: CA-IPCA LABORATORIES LIMITED-E2B_00000016

PATIENT
  Age: 70 Year
  Sex: Female

DRUGS (28)
  1. METFORMIN HYDROCHLORIDE. [Suspect]
     Active Substance: METFORMIN HYDROCHLORIDE
  2. RANITIDINE [Suspect]
     Active Substance: RANITIDINE\RANITIDINE HYDROCHLORIDE
  3. ATORVASTATIN [Suspect]
     Active Substance: ATORVASTATIN
  4. ROFECOXIB [Suspect]
     Active Substance: ROFECOXIB
  5. GLYBURIDE. [Suspect]
     Active Substance: GLYBURIDE
  6. MORPHINE [Concomitant]
     Active Substance: MORPHINE
     Dosage: AVERAGE MORPHINE EQUIVALENT DAILY DOSE WAS 25 MG
  7. RAMIPRIL. [Concomitant]
     Active Substance: RAMIPRIL
  8. IRBESARTAN. [Concomitant]
     Active Substance: IRBESARTAN
     Route: 048
  9. PANCREALIPASE [Concomitant]
     Active Substance: PANCRELIPASE
     Route: 048
  10. INSILIN GLARGINE [Concomitant]
     Dosage: DAILY AT BED TIME
  11. GABAPENTIN. [Suspect]
     Active Substance: GABAPENTIN
  12. NAPROXEN. [Suspect]
     Active Substance: NAPROXEN
  13. GLICLAZIDE [Suspect]
     Active Substance: GLICLAZIDE
  14. CODEINE [Concomitant]
     Active Substance: CODEINE
  15. GEMCITABINE [Concomitant]
     Active Substance: GEMCITABINE\GEMCITABINE HYDROCHLORIDE
     Indication: ADENOCARCINOMA PANCREAS
     Dosage: WEEKLY THREE OUT OF FOUR WEEKS FOR EIGHT CYCLES.
  16. EZETIMIBE. [Suspect]
     Active Substance: EZETIMIBE
  17. MELOXICAM. [Suspect]
     Active Substance: MELOXICAM
  18. GATIFLOXACIN. [Suspect]
     Active Substance: GATIFLOXACIN
  19. PENICILLIN [Suspect]
     Active Substance: PENICILLIN
  20. CELECOXIB. [Suspect]
     Active Substance: CELECOXIB
  21. PRILOCAINE [Suspect]
     Active Substance: PRILOCAINE
  22. ESMOPRAZOLE [Concomitant]
     Route: 048
  23. INSULIN ASPART [Concomitant]
     Active Substance: INSULIN ASPART
  24. MOXIFLOXACIN. [Suspect]
     Active Substance: MOXIFLOXACIN
  25. FENOFIBRATE. [Concomitant]
     Active Substance: FENOFIBRATE
     Route: 048
  26. TOPIRAMATE. [Suspect]
     Active Substance: TOPIRAMATE
  27. HYDROMORPHONE [Concomitant]
     Active Substance: HYDROMORPHONE
     Route: 048
  28. HYDROMORPHONE [Concomitant]
     Active Substance: HYDROMORPHONE
     Route: 048

REACTIONS (1)
  - Anaphylactic reaction [Unknown]
